FAERS Safety Report 16422199 (Version 2)
Quarter: 2019Q2

REPORT INFORMATION
  Report Type: Report from Study
  Country: US (occurrence: US)
  Receive Date: 20190612
  Receipt Date: 20190619
  Transmission Date: 20190711
  Serious: Yes (Hospitalization)
  Sender: FDA-Public Use
  Company Number: PHEH2019US024411

PATIENT
  Sex: Male
  Weight: 97.88 kg

DRUGS (1)
  1. TREPROSTINIL. [Suspect]
     Active Substance: TREPROSTINIL
     Indication: PULMONARY ARTERIAL HYPERTENSION
     Dosage: 22NG/KG/MIN (5 MG/ML), CONTINUOUS
     Route: 042
     Dates: start: 20190610

REACTIONS (5)
  - Pain in jaw [Unknown]
  - Nausea [Recovering/Resolving]
  - Headache [Recovering/Resolving]
  - Flushing [Unknown]
  - Pain in extremity [Unknown]
